FAERS Safety Report 7818149-X (Version None)
Quarter: 2011Q4

REPORT INFORMATION
  Report Type: 
  Country: None (occurrence: None)
  Receive Date: 20111017
  Receipt Date: 20111003
  Transmission Date: 20120403
  Serious: Yes (Other)
  Sender: FDA-Public Use
  Company Number: US-BAYER-201029562NA

PATIENT
  Age: 29 Year
  Sex: Female

DRUGS (6)
  1. YAZ [Suspect]
     Indication: CONTRACEPTION
     Route: 048
     Dates: start: 20031001, end: 20090615
  2. METOPROLOL TARTRATE [Concomitant]
     Indication: ARRHYTHMIA
     Dosage: UNK
     Dates: start: 20090101
  3. METFORMIN HCL [Concomitant]
     Indication: INSULIN RESISTANCE
     Dosage: UNK
     Dates: start: 20030101, end: 20060101
  4. YASMIN [Suspect]
     Indication: CONTRACEPTION
     Route: 048
     Dates: start: 20031001, end: 20090615
  5. ANTIBIOTICS [Concomitant]
  6. ASCORBIC ACID [Concomitant]
     Dosage: UNK
     Dates: start: 20070101, end: 20090101

REACTIONS (4)
  - ANXIETY [None]
  - INJURY [None]
  - PANIC ATTACK [None]
  - ARRHYTHMIA [None]
